FAERS Safety Report 9433994 (Version 1)
Quarter: 2013Q3

REPORT INFORMATION
  Report Type: Spontaneous
  Country: CA (occurrence: CA)
  Receive Date: 20130801
  Receipt Date: 20130801
  Transmission Date: 20140515
  Serious: Yes (Hospitalization)
  Sender: FDA-Public Use
  Company Number: CA-AMGEN-CANSP2013052761

PATIENT
  Age: 77 Year
  Sex: Female

DRUGS (1)
  1. PROLIA [Suspect]
     Indication: OSTEOPOROSIS POSTMENOPAUSAL
     Dosage: UNK
     Route: 065
     Dates: start: 20120508

REACTIONS (6)
  - Myocardial infarction [Unknown]
  - Coronary artery thrombosis [Unknown]
  - Urinary tract disorder [Unknown]
  - Paraesthesia [Unknown]
  - Blood cholesterol increased [Unknown]
  - Cystitis [Unknown]
